FAERS Safety Report 16077344 (Version 2)
Quarter: 2019Q2

REPORT INFORMATION
  Report Type: Report from Study
  Country: US (occurrence: US)
  Receive Date: 20190315
  Receipt Date: 20190402
  Transmission Date: 20190711
  Serious: Yes (Hospitalization)
  Sender: FDA-Public Use
  Company Number: US-PFIZER INC-2019110085

PATIENT
  Age: 5 Year
  Sex: Male
  Weight: 19.7 kg

DRUGS (10)
  1. MERCAPTOPURINE. [Suspect]
     Active Substance: MERCAPTOPURINE
     Indication: B-CELL TYPE ACUTE LEUKAEMIA
     Dosage: 46.8 MG, QD
     Route: 048
     Dates: start: 20190125
  2. BACTRIM [Concomitant]
     Active Substance: SULFAMETHOXAZOLE\TRIMETHOPRIM
     Dosage: UNK
     Dates: start: 20181109
  3. NEURONTIN [Suspect]
     Active Substance: GABAPENTIN
     Dosage: UNK
     Dates: start: 20190125
  4. ASPARAGINASE [Suspect]
     Active Substance: ASPARAGINASE
     Indication: B-CELL TYPE ACUTE LEUKAEMIA
     Dosage: 19500 IU, SINGLE
     Route: 030
     Dates: start: 20190218
  5. ZOFRAN [Concomitant]
     Active Substance: ONDANSETRON HYDROCHLORIDE
     Dosage: UNK
     Dates: start: 20181115
  6. CYTARABINE. [Suspect]
     Active Substance: CYTARABINE
     Indication: B-CELL TYPE ACUTE LEUKAEMIA
     Dosage: 0.59 ML, QD
     Route: 058
     Dates: start: 20190202
  7. ATARAX [ALPRAZOLAM] [Concomitant]
     Active Substance: ALPRAZOLAM
     Dosage: UNK
  8. VINCRISTINE SULFATE. [Suspect]
     Active Substance: VINCRISTINE SULFATE
     Indication: B-CELL TYPE ACUTE LEUKAEMIA
     Dosage: 1.7 MG, SINGLE
     Route: 042
     Dates: start: 20190215
  9. INCB018424 [Suspect]
     Active Substance: RUXOLITINIB
     Indication: B-CELL TYPE ACUTE LEUKAEMIA
     Dosage: 40 MG, BID
     Route: 048
     Dates: start: 20190125
  10. ATARAX [Suspect]
     Active Substance: HYDROXYZINE HYDROCHLORIDE

REACTIONS (2)
  - Febrile neutropenia [Recovered/Resolved]
  - Hallucination, visual [Recovered/Resolved]

NARRATIVE: CASE EVENT DATE: 20190218
